FAERS Safety Report 5452195-9 (Version None)
Quarter: 2007Q3

REPORT INFORMATION
  Report Type: 
  Country: None (occurrence: None)
  Receive Date: 20070912
  Receipt Date: 20070912
  Transmission Date: 20080115
  Serious: Yes (Hospitalization)
  Sender: FDA-Public Use
  Company Number: None

PATIENT
  Sex: Male

DRUGS (4)
  1. TARCEVA [Suspect]
     Dosage: 50-150MG QDAY DAYS 1-38 PO
     Route: 048
     Dates: start: 20070806, end: 20070903
  2. OXALIPLATIN [Suspect]
     Dosage: 85 MG/M2 DAY 1,15,29 IV
     Route: 042
     Dates: start: 20070806, end: 20070903
  3. RADIATION THERAPY IND 76235 [Suspect]
     Dosage: X 6 WKS EXTERNAL
     Dates: start: 20070806, end: 20070913
  4. FLUOROURACIL [Suspect]
     Dosage: 180MG/M2 DAYS 1-28 PVI
     Dates: start: 20070806

REACTIONS (3)
  - FATIGUE [None]
  - PYREXIA [None]
  - RASH [None]
